FAERS Safety Report 6236646-8 (Version None)
Quarter: 2009Q2

REPORT INFORMATION
  Report Type: 
  Country: None (occurrence: None)
  Receive Date: 20090619
  Receipt Date: 20081106
  Transmission Date: 20091009
  Serious: No
  Sender: FDA-Public Use
  Company Number: US-ASTRAZENECA-2008UW24993

PATIENT
  Age: 85 Year
  Sex: Female

DRUGS (11)
  1. ATACAND [Suspect]
     Route: 048
     Dates: start: 20081001
  2. NORVASC [Concomitant]
  3. METOPROLOL SUCCINATE [Concomitant]
  4. ALLOPURINOL [Concomitant]
  5. POTASSIUM CHLORIDE [Concomitant]
  6. SYNTHROID [Concomitant]
  7. ASPIRIN [Concomitant]
  8. ULTRAN TAB [Concomitant]
  9. HYDROCODONE BITARTRATE [Concomitant]
  10. FISH OIL [Concomitant]
  11. COD LIVER OIL [Concomitant]

REACTIONS (2)
  - ASTHENIA [None]
  - PAIN [None]
